FAERS Safety Report 11642826 (Version 2)
Quarter: 2015Q4

REPORT INFORMATION
  Report Type: Report from Study
  Country: US (occurrence: US)
  Receive Date: 20151020
  Receipt Date: 20151030
  Transmission Date: 20160304
  Serious: Yes (Hospitalization, Other)
  Sender: FDA-Public Use
  Company Number: US-AMGEN-USASL2015106980

PATIENT
  Age: 69 Year
  Sex: Male

DRUGS (1)
  1. ENBREL [Suspect]
     Active Substance: ETANERCEPT
     Indication: PSORIATIC ARTHROPATHY
     Dosage: UNK
     Route: 065
     Dates: start: 20080218

REACTIONS (9)
  - Arthritis [Unknown]
  - Skin exfoliation [Unknown]
  - Foot fracture [Unknown]
  - Rib fracture [Unknown]
  - Musculoskeletal disorder [Unknown]
  - Influenza [Unknown]
  - Malaise [Unknown]
  - Infection [Recovered/Resolved]
  - Pneumonia [Unknown]
